FAERS Safety Report 12791810 (Version 1)
Quarter: 2016Q3

REPORT INFORMATION
  Report Type: Spontaneous
  Country: US (occurrence: US)
  Receive Date: 20160928
  Receipt Date: 20160928
  Transmission Date: 20161109
  Serious: Yes (Hospitalization)
  Sender: FDA-Public Use
  Company Number: None

PATIENT
  Age: 73 Year
  Sex: Male
  Weight: 68.6 kg

DRUGS (1)
  1. DABIGATRAN [Suspect]
     Active Substance: DABIGATRAN
     Indication: ATRIAL FIBRILLATION
     Dosage: MG PO
     Route: 048
     Dates: start: 20131126, end: 20160824

REACTIONS (8)
  - Asthenia [None]
  - Melaena [None]
  - Dyspnoea exertional [None]
  - Gastric haemorrhage [None]
  - Fatigue [None]
  - Anaemia [None]
  - Alcohol use [None]
  - Diverticulum [None]

NARRATIVE: CASE EVENT DATE: 20160824
